FAERS Safety Report 19148434 (Version 1)
Quarter: 2021Q2

REPORT INFORMATION
  Report Type: Spontaneous
  Country: CN (occurrence: CN)
  Receive Date: 20210416
  Receipt Date: 20210416
  Transmission Date: 20210717
  Serious: Yes (Hospitalization)
  Sender: FDA-Public Use
  Company Number: NVSC2021CN083555

PATIENT
  Age: 5 Year
  Sex: Female
  Weight: 18.6 kg

DRUGS (7)
  1. SODIUM CHLORIDE. [Concomitant]
     Active Substance: SODIUM CHLORIDE
     Dosage: 22.000 ML, QD
     Route: 042
     Dates: start: 20210320, end: 20210324
  2. ONDANSETRON [Concomitant]
     Active Substance: ONDANSETRON
     Indication: VOMITING
     Dosage: 3.700 ML, TID
     Route: 042
     Dates: start: 20210320, end: 20210324
  3. ENDOXAN [Suspect]
     Active Substance: CYCLOPHOSPHAMIDE
     Indication: ADVERSE EVENT
     Dosage: 185.000 MG, QD
     Route: 042
     Dates: start: 20210320, end: 20210324
  4. SODIUM CHLORIDE. [Concomitant]
     Active Substance: SODIUM CHLORIDE
     Dosage: 25 ML, QD
     Route: 042
     Dates: start: 20210320, end: 20210324
  5. HYCAMTIN [Suspect]
     Active Substance: TOPOTECAN HYDROCHLORIDE
     Indication: ADVERSE EVENT
     Dosage: 0.560 MG
     Route: 042
     Dates: start: 20210320, end: 20210324
  6. MESNA. [Concomitant]
     Active Substance: MESNA
     Indication: CYSTITIS HAEMORRHAGIC
     Dosage: 111.000 MG, BID
     Route: 042
     Dates: start: 20210320, end: 20210324
  7. SODIUM CHLORIDE. [Concomitant]
     Active Substance: SODIUM CHLORIDE
     Indication: MEDICATION DILUTION
     Dosage: 44.000 ML, QD
     Route: 042
     Dates: start: 20210320, end: 20210324

REACTIONS (3)
  - Petechiae [Recovering/Resolving]
  - Pyrexia [Recovering/Resolving]
  - Full blood count decreased [Recovering/Resolving]

NARRATIVE: CASE EVENT DATE: 20210330
